FAERS Safety Report 9966451 (Version 2)
Quarter: 2014Q1

REPORT INFORMATION
  Report Type: Report from Study
  Country: US (occurrence: US)
  Receive Date: 20140305
  Receipt Date: 20140305
  Transmission Date: 20141002
  Serious: No
  Sender: FDA-Public Use
  Company Number: US-ABBVIE-13P-163-1103277-00

PATIENT
  Age: 63 Year
  Sex: Female

DRUGS (10)
  1. HUMIRA [Suspect]
     Indication: COLITIS ULCERATIVE
     Dates: start: 20130523, end: 20130523
  2. HUMIRA [Suspect]
     Dates: start: 20130606, end: 20130606
  3. HUMIRA [Suspect]
     Dates: start: 20130620
  4. BLOOD PRESSURE PILL [Concomitant]
     Indication: HYPERTENSION
  5. WATER PILL [Concomitant]
     Indication: HYPERTENSION
  6. WELLBUTRIN [Concomitant]
     Indication: DEPRESSION
  7. ALLOPURINOL [Concomitant]
     Indication: GOUT
  8. COD LIVER OIL [Concomitant]
     Indication: PRODUCT USED FOR UNKNOWN INDICATION
  9. FISH OIL [Concomitant]
     Indication: PRODUCT USED FOR UNKNOWN INDICATION
  10. MULTIVITAMIN [Concomitant]
     Indication: PRODUCT USED FOR UNKNOWN INDICATION

REACTIONS (4)
  - Injection site bruising [Not Recovered/Not Resolved]
  - Injection site erythema [Recovering/Resolving]
  - Injection site swelling [Recovering/Resolving]
  - Injection site pruritus [Recovering/Resolving]
